FAERS Safety Report 14604343 (Version 13)
Quarter: 2020Q2

REPORT INFORMATION
  Report Type: Report from Study
  Country: US (occurrence: US)
  Receive Date: 20180306
  Receipt Date: 20200421
  Transmission Date: 20200713
  Serious: Yes (Other)
  Sender: FDA-Public Use
  Company Number: US-BRISTOL-MYERS SQUIBB COMPANY-BMS-2018-021228

PATIENT
  Age: 61 Year
  Sex: Female
  Weight: 82.09 kg

DRUGS (1)
  1. ABATACEPT [Suspect]
     Active Substance: ABATACEPT
     Indication: RHEUMATOID ARTHRITIS
     Dosage: 125 MILLIGRAM, QWK
     Route: 058
     Dates: start: 201812

REACTIONS (24)
  - Tooth infection [Unknown]
  - Dry mouth [Unknown]
  - Dysphonia [Unknown]
  - Injection site bruising [Unknown]
  - Cough [Unknown]
  - Pain [Unknown]
  - Rash [Unknown]
  - Malaise [Unknown]
  - Tooth disorder [Unknown]
  - Product storage error [Unknown]
  - Sinusitis [Unknown]
  - Headache [Not Recovered/Not Resolved]
  - Incontinence [Unknown]
  - Gingivitis [Unknown]
  - Nightmare [Unknown]
  - Injection site haemorrhage [Unknown]
  - Wrong technique in product usage process [Unknown]
  - Sinus disorder [Unknown]
  - Toothache [Unknown]
  - Injection site dryness [Unknown]
  - Nodule [Unknown]
  - Hypersensitivity [Unknown]
  - Injection site swelling [Unknown]
  - Injection site erythema [Unknown]

NARRATIVE: CASE EVENT DATE: 20190320
